FAERS Safety Report 18452423 (Version 1)
Quarter: 2020Q4

REPORT INFORMATION
  Report Type: Spontaneous
  Country: US (occurrence: US)
  Receive Date: 20201102
  Receipt Date: 20201102
  Transmission Date: 20210114
  Serious: No
  Sender: FDA-Public Use
  Company Number: US-MYLANLABS-2020M1089496

PATIENT
  Sex: Male

DRUGS (1)
  1. ESTRADIOL TRANSDERMAL SYSTEM [Suspect]
     Active Substance: ESTRADIOL
     Indication: TESTICULAR MASS
     Dosage: 0.075 MILLIGRAM, QD
     Route: 062
     Dates: start: 20201015

REACTIONS (2)
  - Off label use [Unknown]
  - Product adhesion issue [Not Recovered/Not Resolved]
